FAERS Safety Report 24128169 (Version 2)
Quarter: 2024Q3

REPORT INFORMATION
  Report Type: Spontaneous
  Country: US (occurrence: US)
  Receive Date: 20240723
  Receipt Date: 20240813
  Transmission Date: 20241016
  Serious: Yes (Other)
  Sender: FRESENIUS KABI
  Company Number: US-FreseniusKabi-FK202411307

PATIENT

DRUGS (1)
  1. PROTAMINE SULFATE [Suspect]
     Active Substance: PROTAMINE SULFATE
     Indication: Procoagulant therapy
     Dosage: FORM OF ADMINISTRATION: INJECTION?PATIENT RECEIVED PROTAMINE FROM VIAL NOT SAVED ONLY.

REACTIONS (4)
  - Type I hypersensitivity [Unknown]
  - Haemorrhage [Unknown]
  - Therapeutic product effect increased [Unknown]
  - Paradoxical drug reaction [Unknown]

NARRATIVE: CASE EVENT DATE: 20240711
